FAERS Safety Report 7554669-3 (Version None)
Quarter: 2011Q2

REPORT INFORMATION
  Report Type: 
  Country: None (occurrence: None)
  Receive Date: 20110610
  Receipt Date: 20110603
  Transmission Date: 20111010
  Serious: Yes (Death)
  Sender: FDA-Public Use
  Company Number: US-2011-10359

PATIENT
  Sex: Male

DRUGS (5)
  1. GLOBULINES ANTILYMPHOCYTAIRES FRESENIUS (ANTILYMPHOCYTE IMMUNOGLOBULIN [Concomitant]
  2. CYCLOPHOSPHAMIDE [Suspect]
     Indication: STEM CELL TRANSPLANT
     Dosage: 120 MG/KG, INTRAVENOUS
     Route: 042
  3. METHOTREXATE [Concomitant]
  4. BUSULFEX [Suspect]
     Indication: STEM CELL TRANSPLANT
     Dosage: 16 MG/KG, INTRAVENOUS
     Route: 042
  5. CYCLOSPORINE [Concomitant]

REACTIONS (2)
  - CHRONIC GRAFT VERSUS HOST DISEASE [None]
  - BACTERIAL SEPSIS [None]
